FAERS Safety Report 10412643 (Version 1)
Quarter: 2014Q2

REPORT INFORMATION
  Report Type: Spontaneous
  Country: US (occurrence: None)
  Receive Date: 20140604
  Receipt Date: 20140604
  Transmission Date: 20141212
  Serious: Yes (Hospitalization)
  Sender: FDA-Public Use
  Company Number: 163-POMAL-14023047

PATIENT
  Age: 64 Year
  Sex: Male

DRUGS (12)
  1. POMALYST (POMALIDOMIDE) (CAPSULES) [Suspect]
     Indication: PLASMA CELL MYELOMA
     Dosage: 2 MG, 21 IN 21 D
     Route: 048
     Dates: start: 20140120, end: 20140205
  2. GABAPENTIN [Concomitant]
  3. OXYCONTIN (OXYCODONE HYDROCHLORIDE) [Concomitant]
  4. OXYCODONE HCL (OXYCODONE HYDROCHLORIDE) [Concomitant]
  5. ZOVIRAX (ACICLOVIR) [Concomitant]
  6. XANAX (ALPRAZOLAM) [Concomitant]
  7. ASPIRIN (ACETYLSALICYLIC ACID) [Concomitant]
  8. BACLOFEN [Concomitant]
  9. LASIX (FUROSEMIDE) [Concomitant]
  10. LISINOPRIL [Concomitant]
  11. METOPROLOL [Concomitant]
  12. PROTONIX [Concomitant]

REACTIONS (2)
  - Respiratory syncytial virus infection [None]
  - Sepsis [None]
